FAERS Safety Report 5901745-4 (Version None)
Quarter: 2008Q3

REPORT INFORMATION
  Report Type: 
  Country: None (occurrence: None)
  Receive Date: 20080929
  Receipt Date: 20080926
  Transmission Date: 20090109
  Serious: Yes (Life-Threatening, Hospitalization, Other)
  Sender: FDA-Public Use
  Company Number: FR-BRISTOL-MYERS SQUIBB COMPANY-14240444

PATIENT
  Age: 59 Year
  Sex: Male

DRUGS (21)
  1. FERVEX [Suspect]
     Indication: MYALGIA
     Dates: start: 20080518, end: 20080522
  2. FERVEX [Suspect]
     Indication: PYREXIA
     Dates: start: 20080518, end: 20080522
  3. FERVEX [Suspect]
     Indication: ASTHENIA
     Dates: start: 20080518, end: 20080522
  4. FERVEX [Suspect]
     Indication: PNEUMONIA
     Dates: start: 20080518, end: 20080522
  5. ACETAMINOPHEN [Suspect]
     Indication: MYALGIA
     Dates: start: 20080518, end: 20080522
  6. ACETAMINOPHEN [Suspect]
     Indication: PYREXIA
     Dates: start: 20080518, end: 20080522
  7. ACETAMINOPHEN [Suspect]
     Indication: ASTHENIA
     Dates: start: 20080518, end: 20080522
  8. ACETAMINOPHEN [Suspect]
     Indication: PNEUMONIA
     Dates: start: 20080518, end: 20080522
  9. METFORMIN HCL [Suspect]
     Dates: end: 20080526
  10. IBUPROFEN [Suspect]
     Indication: MYALGIA
     Dates: start: 20080518, end: 20080522
  11. IBUPROFEN [Suspect]
     Indication: PYREXIA
     Dates: start: 20080518, end: 20080522
  12. IBUPROFEN [Suspect]
     Indication: ASTHENIA
     Dates: start: 20080518, end: 20080522
  13. IBUPROFEN [Suspect]
     Indication: PNEUMONIA
     Dates: start: 20080518, end: 20080522
  14. MONONAXY [Suspect]
     Indication: MYALGIA
     Dates: start: 20080518, end: 20080522
  15. MONONAXY [Suspect]
     Indication: PYREXIA
     Dates: start: 20080518, end: 20080522
  16. MONONAXY [Suspect]
     Indication: ASTHENIA
     Dates: start: 20080518, end: 20080522
  17. MONONAXY [Suspect]
     Indication: PNEUMONIA
     Dates: start: 20080518, end: 20080522
  18. DIAMICRON [Concomitant]
  19. KARDEGIC [Concomitant]
  20. PLAVIX [Concomitant]
  21. ELISOR [Concomitant]

REACTIONS (6)
  - ASTHENIA [None]
  - HYPERKALAEMIA [None]
  - METABOLIC ACIDOSIS [None]
  - OVERDOSE [None]
  - PYREXIA [None]
  - RENAL FAILURE ACUTE [None]
